FAERS Safety Report 25190620 (Version 1)
Quarter: 2025Q2

REPORT INFORMATION
  Report Type: Report from Study
  Country: US (occurrence: US)
  Receive Date: 20250411
  Receipt Date: 20250411
  Transmission Date: 20250716
  Serious: Yes (Hospitalization, Other)
  Sender: ABBVIE
  Company Number: US-ABBVIE-6210490

PATIENT
  Age: 42 Year
  Sex: Female

DRUGS (5)
  1. HUMIRA [Suspect]
     Active Substance: ADALIMUMAB
     Indication: Rheumatoid arthritis
     Route: 058
     Dates: start: 20170401, end: 202407
  2. HUMIRA [Suspect]
     Active Substance: ADALIMUMAB
     Route: 058
     Dates: start: 202410
  3. DOXYCYCLINE [Concomitant]
     Active Substance: DOXYCYCLINE
     Indication: Antibiotic therapy
  4. METHOTREXATE [Suspect]
     Active Substance: METHOTREXATE
     Indication: Product used for unknown indication
     Route: 065
  5. ROSUVASTATIN [Suspect]
     Active Substance: ROSUVASTATIN
     Indication: Product used for unknown indication
     Route: 065

REACTIONS (18)
  - Thrombosis in device [Unknown]
  - Knee arthroplasty [Recovering/Resolving]
  - Pyrexia [Unknown]
  - Erythema [Recovering/Resolving]
  - Toxicity to various agents [Unknown]
  - Hepatic enzyme increased [Recovering/Resolving]
  - Weight increased [Unknown]
  - Fall [Recovering/Resolving]
  - Hand fracture [Unknown]
  - Arthritis infective [Recovering/Resolving]
  - Chills [Unknown]
  - Decreased appetite [Unknown]
  - Nausea [Unknown]
  - Fall [Recovering/Resolving]
  - Adverse food reaction [Unknown]
  - Rheumatoid arthritis [Unknown]
  - Drug hypersensitivity [Unknown]
  - White blood cell count abnormal [Unknown]

NARRATIVE: CASE EVENT DATE: 20230724
